FAERS Safety Report 12416583 (Version 1)
Quarter: 2016Q2

REPORT INFORMATION
  Report Type: Spontaneous
  Country: CN (occurrence: CN)
  Receive Date: 20160530
  Receipt Date: 20160530
  Transmission Date: 20160815
  Serious: Yes (Other)
  Sender: FDA-Public Use
  Company Number: CN-JNJFOC-20140107534

PATIENT
  Age: 32 Year
  Sex: Male

DRUGS (6)
  1. RISPERDAL [Suspect]
     Active Substance: RISPERIDONE
     Indication: PARANOIA
     Route: 048
     Dates: start: 201212
  2. RISPERDAL [Suspect]
     Active Substance: RISPERIDONE
     Indication: PARANOIA
     Route: 048
     Dates: start: 2010
  3. SULPIRIDE [Concomitant]
     Active Substance: SULPIRIDE
     Route: 065
  4. CHINESE DRUG [Concomitant]
     Active Substance: UNSPECIFIED INGREDIENT
     Route: 065
  5. QUETIAPINE. [Concomitant]
     Active Substance: QUETIAPINE
     Route: 065
  6. RISPERDAL [Suspect]
     Active Substance: RISPERIDONE
     Indication: PARANOIA
     Route: 048
     Dates: start: 200902

REACTIONS (5)
  - Sexual dysfunction [Unknown]
  - Spermatorrhoea [Unknown]
  - Mental impairment [Unknown]
  - Rash [Recovered/Resolved]
  - Asthenia [Recovered/Resolved]
